FAERS Safety Report 8725675 (Version 2)
Quarter: 2013Q1

REPORT INFORMATION
  Report Type: Spontaneous
  Country: US (occurrence: US)
  Receive Date: 20120815
  Receipt Date: 20130123
  Transmission Date: 20140127
  Serious: Yes (Other)
  Sender: FDA-Public Use
  Company Number: US-BAYER-2012-081989

PATIENT
  Age: 42 Year
  Sex: Female
  Weight: 56 kg

DRUGS (4)
  1. MIRENA [Suspect]
     Indication: CONTRACEPTION
     Dosage: 20 MCG/24HR, CONT
     Route: 015
     Dates: start: 201109, end: 20120614
  2. CALTRATE [Concomitant]
  3. MULTIVITAMIN [Concomitant]
  4. MACROBID [Concomitant]

REACTIONS (5)
  - Vaginal haemorrhage [None]
  - Urinary tract infection [None]
  - Haematuria [None]
  - Device expulsion [Recovered/Resolved]
  - Muscle spasms [None]
